FAERS Safety Report 16450864 (Version 1)
Quarter: 2019Q2

REPORT INFORMATION
  Report Type: Spontaneous
  Country: US (occurrence: US)
  Receive Date: 20190619
  Receipt Date: 20190619
  Transmission Date: 20190711
  Serious: Yes (Hospitalization, Other)
  Sender: FDA-Public Use
  Company Number: US-009507513-1906USA004786

PATIENT
  Sex: Male

DRUGS (3)
  1. GLYCOPYRROLATE. [Concomitant]
     Active Substance: GLYCOPYRROLATE
     Dosage: UNK
     Dates: start: 2017
  2. BRIDION [Suspect]
     Active Substance: SUGAMMADEX
     Indication: NEUROMUSCULAR BLOCKADE REVERSAL
     Dosage: 2 MILLIGRAM/KILOGRAM, UNK
     Route: 042
     Dates: start: 2017, end: 2017
  3. NEOSTIGMINE METHYLSULFATE. [Concomitant]
     Active Substance: NEOSTIGMINE METHYLSULFATE
     Dosage: UNK
     Dates: start: 2017

REACTIONS (3)
  - Bradycardia [Unknown]
  - Atrioventricular block first degree [Unknown]
  - Electrocardiogram P wave abnormal [Unknown]

NARRATIVE: CASE EVENT DATE: 2017
